FAERS Safety Report 15977628 (Version 3)
Quarter: 2019Q1

REPORT INFORMATION
  Report Type: Spontaneous
  Country: JP (occurrence: JP)
  Receive Date: 20190218
  Receipt Date: 20190319
  Transmission Date: 20190418
  Serious: Yes (Other)
  Sender: FDA-Public Use
  Company Number: PHJP2019JP002013

PATIENT
  Age: 47 Year
  Sex: Male
  Weight: 44 kg

DRUGS (6)
  1. TEGRETOL [Suspect]
     Active Substance: CARBAMAZEPINE
     Indication: LENNOX-GASTAUT SYNDROME
     Dosage: 400 MG, QD
     Route: 048
     Dates: start: 2008
  2. TEGRETOL [Suspect]
     Active Substance: CARBAMAZEPINE
     Dosage: UNK
     Route: 048
  3. PHENOBARBITAL. [Concomitant]
     Active Substance: PHENOBARBITAL
     Indication: LENNOX-GASTAUT SYNDROME
     Dosage: 100 MG, QD
     Route: 065
     Dates: start: 2008
  4. ACETAZOLAMIDE. [Concomitant]
     Active Substance: ACETAZOLAMIDE
     Indication: LENNOX-GASTAUT SYNDROME
     Dosage: 200 MG, QD
     Route: 065
     Dates: start: 2008
  5. PHENYTOIN. [Concomitant]
     Active Substance: PHENYTOIN
     Indication: LENNOX-GASTAUT SYNDROME
     Dosage: 200 MG, QD
     Route: 065
     Dates: start: 2008
  6. SODIUM VALPROATE [Suspect]
     Active Substance: VALPROATE SODIUM
     Indication: LENNOX-GASTAUT SYNDROME
     Dosage: 900 MG, QD
     Route: 065
     Dates: start: 2008

REACTIONS (3)
  - Pneumonia aspiration [Recovering/Resolving]
  - Pancreatitis chronic [Unknown]
  - Product use in unapproved indication [Unknown]

NARRATIVE: CASE EVENT DATE: 201008
